FAERS Safety Report 7997950-6 (Version None)
Quarter: 2011Q4

REPORT INFORMATION
  Report Type: 
  Country: None (occurrence: None)
  Receive Date: 20111221
  Receipt Date: 20111219
  Transmission Date: 20120403
  Serious: Yes (Life-Threatening, Hospitalization, Other)
  Sender: FDA-Public Use
  Company Number: PHHY2008CA13034

PATIENT
  Sex: Male

DRUGS (10)
  1. CLOZARIL [Suspect]
     Dates: start: 20110526
  2. IMOVANE [Concomitant]
     Dosage: 7.5 MG, UNK
     Route: 048
  3. CLOZARIL [Suspect]
     Indication: SCHIZOAFFECTIVE DISORDER
     Route: 048
     Dates: start: 20080403, end: 20090505
  4. CLOZARIL [Suspect]
     Dosage: 3500 MG, ONCE/SINGLE
     Dates: start: 20080702
  5. COCAINE [Concomitant]
  6. VALPROATE SODIUM [Concomitant]
     Dosage: 100 MG, HS
  7. ABILIFY [Concomitant]
     Dosage: 10 MG, Q AM
  8. CLOZARIL [Suspect]
     Dosage: 500 MG, UNK
     Route: 048
     Dates: start: 20080501
  9. VALPROATE SODIUM [Concomitant]
     Dosage: 2 G
  10. CLOZARIL [Suspect]
     Dosage: 2000 MG, 20X100 MG TABLETS

REACTIONS (5)
  - INTENTIONAL OVERDOSE [None]
  - SUICIDE ATTEMPT [None]
  - DRUG INEFFECTIVE [None]
  - VOMITING [None]
  - WHITE BLOOD CELL COUNT INCREASED [None]
